FAERS Safety Report 8117419-8 (Version None)
Quarter: 2012Q1

REPORT INFORMATION
  Report Type: 
  Country: None (occurrence: None)
  Receive Date: 20120207
  Receipt Date: 20120124
  Transmission Date: 20120608
  Serious: Yes (Hospitalization, Other)
  Sender: FDA-Public Use
  Company Number: AR-AMGEN-ARGSP2011014089

PATIENT
  Age: 45 Year
  Sex: Female
  Weight: 108 kg

DRUGS (4)
  1. ENBREL [Suspect]
     Indication: RHEUMATOID ARTHRITIS
     Dosage: 50 MG, WEEKLY
     Route: 058
     Dates: start: 20081104, end: 20110201
  2. OMEPRAZOLE [Concomitant]
     Dosage: UNK
  3. METFORMIN HCL [Concomitant]
     Dosage: UNK
  4. ENALAPRIL MALEATE [Concomitant]
     Dosage: UNK

REACTIONS (10)
  - PHARYNGEAL INFLAMMATION [None]
  - SWELLING [None]
  - TOOTH INFECTION [None]
  - PHARYNGITIS [None]
  - PROTEINURIA [None]
  - OBESITY [None]
  - ESCHAR [None]
  - BLOOD GLUCOSE INCREASED [None]
  - THYROID DISORDER [None]
  - NODULE [None]
